FAERS Safety Report 6588120-7 (Version None)
Quarter: 2010Q1

REPORT INFORMATION
  Report Type: 
  Country: None (occurrence: None)
  Receive Date: 20100205
  Receipt Date: 20100125
  Transmission Date: 20100710
  Serious: Yes (Death)
  Sender: FDA-Public Use
  Company Number: 2009AL001539

PATIENT
  Age: 56 Year
  Sex: Male

DRUGS (5)
  1. CITALOPRAM HYDROBROMIDE [Suspect]
     Indication: DEPRESSION
     Dosage: 40 MG;QD; PO
     Route: 048
     Dates: start: 20090102
  2. PERINDOPRIL [Concomitant]
  3. WARFARIN [Concomitant]
  4. ATENOLOL [Concomitant]
  5. DIGOXIN [Concomitant]

REACTIONS (7)
  - ANXIETY [None]
  - COMPLETED SUICIDE [None]
  - DECREASED APPETITE [None]
  - DEPRESSION [None]
  - DISEASE RECURRENCE [None]
  - PARAESTHESIA [None]
  - POOR QUALITY SLEEP [None]
